FAERS Safety Report 9460278 (Version 2)
Quarter: 2013Q3

REPORT INFORMATION
  Report Type: Spontaneous
  Country: US (occurrence: US)
  Receive Date: 20130815
  Receipt Date: 20130924
  Transmission Date: 20140515
  Serious: No
  Sender: FDA-Public Use
  Company Number: US-009507513-1308USA005134

PATIENT
  Age: 81 Year
  Sex: Female
  Weight: 58.5 kg

DRUGS (3)
  1. COSOPT PF [Suspect]
     Indication: GLAUCOMA
     Dosage: 1 GTT, IN EACH EYE/TWICE DAILY
     Route: 047
     Dates: start: 201302
  2. DIOVAN [Concomitant]
  3. LEXAPRO [Concomitant]

REACTIONS (1)
  - Hypertension [Recovered/Resolved]
